FAERS Safety Report 5601274-1 (Version None)
Quarter: 2008Q1

REPORT INFORMATION
  Report Type: 
  Country: None (occurrence: None)
  Receive Date: 20080122
  Receipt Date: 20080122
  Transmission Date: 20080703
  Serious: No
  Sender: FDA-Public Use
  Company Number: None

PATIENT
  Age: 53 Year
  Sex: Female
  Weight: 148.3262 kg

DRUGS (3)
  1. FENTANYL [Suspect]
     Indication: FIBROMYALGIA
     Dosage: CHANGE PATCH EVERY 3 DAYS EVERY 3 DAYS TRANSDERMAL SEVERAL YEARS TO PRESENT
     Route: 062
  2. FENTANYL [Suspect]
     Indication: OSTEONECROSIS
     Dosage: CHANGE PATCH EVERY 3 DAYS EVERY 3 DAYS TRANSDERMAL SEVERAL YEARS TO PRESENT
     Route: 062
  3. FENTANYL [Suspect]
     Indication: PAIN
     Dosage: CHANGE PATCH EVERY 3 DAYS EVERY 3 DAYS TRANSDERMAL SEVERAL YEARS TO PRESENT
     Route: 062

REACTIONS (3)
  - BREAKTHROUGH PAIN [None]
  - INADEQUATE ANALGESIA [None]
  - PHARMACEUTICAL PRODUCT COMPLAINT [None]
